FAERS Safety Report 16296311 (Version 2)
Quarter: 2019Q2

REPORT INFORMATION
  Report Type: Spontaneous
  Country: US (occurrence: US)
  Receive Date: 20190510
  Receipt Date: 20190516
  Transmission Date: 20190711
  Serious: No
  Sender: FDA-Public Use
  Company Number: US-PFIZER INC-2019197137

PATIENT
  Age: 44 Year
  Sex: Female

DRUGS (1)
  1. XELJANZ XR [Suspect]
     Active Substance: TOFACITINIB CITRATE
     Dosage: UNK
     Dates: start: 20181101, end: 20190415

REACTIONS (4)
  - Pain [Not Recovered/Not Resolved]
  - Eye swelling [Unknown]
  - Facial asymmetry [Unknown]
  - Chest pain [Unknown]
